FAERS Safety Report 7269453 (Version 3)
Quarter: 2013Q3

REPORT INFORMATION
  Report Type: Spontaneous
  Country: US (occurrence: US)
  Receive Date: 20100203
  Receipt Date: 20130708
  Transmission Date: 20140515
  Serious: Yes (Death, Hospitalization, Other)
  Sender: FDA-Public Use
  Company Number: US-JNJFOC-20091106037

PATIENT
  Age: 75 Year
  Sex: Female
  Weight: 91.17 kg

DRUGS (16)
  1. REMICADE [Suspect]
     Indication: RHEUMATOID ARTHRITIS
     Route: 042
     Dates: start: 20091104
  2. REMICADE [Suspect]
     Indication: RHEUMATOID ARTHRITIS
     Route: 042
     Dates: start: 20091104
  3. REMICADE [Suspect]
     Indication: RHEUMATOID ARTHRITIS
     Route: 042
     Dates: start: 20091007
  4. SYNTHROID [Concomitant]
     Route: 065
  5. ALLOPURINOL [Concomitant]
     Route: 065
  6. DIOVAN [Concomitant]
     Route: 065
  7. OXYCODONE [Concomitant]
  8. PREDNISONE [Concomitant]
  9. ACTONEL [Concomitant]
  10. SULFASALAZINE [Concomitant]
  11. VITAMIN D [Concomitant]
     Dosage: 50,000 UNITS EVERY 3 WEEKS
  12. FORADIL [Concomitant]
     Route: 055
  13. IRON SULFATE [Concomitant]
  14. VITAMIN B12 [Concomitant]
     Route: 065
  15. LEVOTHYROXINE [Concomitant]
     Route: 065
  16. OXYCONTIN [Concomitant]
     Route: 065

REACTIONS (7)
  - Death [Fatal]
  - Dyspnoea [Recovered/Resolved]
  - Chest pain [Recovered/Resolved]
  - Flushing [Recovered/Resolved]
  - Gastrooesophageal reflux disease [Recovered/Resolved]
  - Infusion related reaction [Recovered/Resolved]
  - Weight decreased [Recovering/Resolving]
